FAERS Safety Report 6506032-1 (Version None)
Quarter: 2009Q4

REPORT INFORMATION
  Report Type: 
  Country: None (occurrence: None)
  Receive Date: 20091217
  Receipt Date: 20091217
  Transmission Date: 20100525
  Serious: Yes (Other)
  Sender: FDA-Public Use
  Company Number: None

PATIENT
  Age: 50 Year
  Sex: Female
  Weight: 90.7194 kg

DRUGS (1)
  1. METRONIDAZOLE [Suspect]
     Indication: DIVERTICULITIS
     Dosage: 1 TABLET TWICE A DAY PO
     Route: 048
     Dates: start: 20091204, end: 20091210

REACTIONS (3)
  - ARTHRALGIA [None]
  - PRODUCT SUBSTITUTION ISSUE [None]
  - RASH [None]
